FAERS Safety Report 5058457-1 (Version None)
Quarter: 2006Q3

REPORT INFORMATION
  Report Type: 
  Country: None (occurrence: None)
  Receive Date: 20060719
  Receipt Date: 20060713
  Transmission Date: 20061208
  Serious: Yes (Other)
  Sender: FDA-Public Use
  Company Number: FR-2006-016821

PATIENT
  Age: 68 Year
  Sex: Female

DRUGS (4)
  1. CAMPATH [Suspect]
     Indication: CHRONIC LYMPHOCYTIC LEUKAEMIA
     Dosage: 30 MG, 3X/WEEK, INTRAVENOUS
     Route: 042
     Dates: start: 20050420, end: 20050820
  2. BACTRIM [Concomitant]
  3. VALACYCLOVIR [Concomitant]
  4. LEDERFOLIN  (CALCIUM FOLINATE) [Concomitant]

REACTIONS (2)
  - CHOLANGITIS SCLEROSING [None]
  - DRUG INEFFECTIVE [None]
